FAERS Safety Report 12661006 (Version 2)
Quarter: 2016Q3

REPORT INFORMATION
  Report Type: Spontaneous
  Country: US (occurrence: US)
  Receive Date: 20160817
  Receipt Date: 20160901
  Transmission Date: 20161109
  Serious: No
  Sender: FDA-Public Use
  Company Number: US-RELYPSA-RLY2016001168

PATIENT
  Age: 50 Year
  Sex: Female

DRUGS (8)
  1. VITAMIN D                          /00107901/ [Concomitant]
     Active Substance: ERGOCALCIFEROL
  2. LISINOPRIL. [Concomitant]
     Active Substance: LISINOPRIL
     Indication: NEPHROPATHY
  3. VELTASSA [Suspect]
     Active Substance: PATIROMER
     Indication: PRODUCT USED FOR UNKNOWN INDICATION
     Dosage: 8.4 G, QD
     Route: 048
     Dates: start: 201606
  4. TEGRETOL [Concomitant]
     Active Substance: CARBAMAZEPINE
     Indication: PSYCHOMOTOR HYPERACTIVITY
  5. IRON [Concomitant]
     Active Substance: IRON
  6. BABY ASPIRIN [Concomitant]
     Active Substance: ASPIRIN
  7. FISH OIL [Concomitant]
     Active Substance: FISH OIL
  8. ATORVASTATIN [Concomitant]
     Active Substance: ATORVASTATIN
     Indication: BLOOD CHOLESTEROL
     Dosage: 20 MG, QOD

REACTIONS (4)
  - Flatulence [Not Recovered/Not Resolved]
  - Incorrect product storage [Recovered/Resolved]
  - Malaise [Unknown]
  - Diarrhoea [Recovered/Resolved]

NARRATIVE: CASE EVENT DATE: 201606
